FAERS Safety Report 21955595 (Version 1)
Quarter: 2023Q1

REPORT INFORMATION
  Report Type: Spontaneous
  Country: US (occurrence: US)
  Receive Date: 20230206
  Receipt Date: 20230206
  Transmission Date: 20230418
  Serious: No
  Sender: FDA-Public Use
  Company Number: US-BIOVITRUM-2023US01730

PATIENT
  Sex: Male
  Weight: 7 kg

DRUGS (5)
  1. SYNAGIS [Suspect]
     Active Substance: PALIVIZUMAB
     Indication: Illness
     Dates: start: 202212
  2. D-VI-SOL [Concomitant]
     Dosage: 10(400)/ML DROPS
  3. EPINEPHRINE [Concomitant]
     Active Substance: EPINEPHRINE
  4. SYNAGIS [Suspect]
     Active Substance: PALIVIZUMAB
     Indication: Atrial septal defect
  5. SYNAGIS [Suspect]
     Active Substance: PALIVIZUMAB
     Indication: Low birth weight baby

REACTIONS (1)
  - COVID-19 [Unknown]
